FAERS Safety Report 16098861 (Version 2)
Quarter: 2019Q2

REPORT INFORMATION
  Report Type: Spontaneous
  Country: US (occurrence: US)
  Receive Date: 20190321
  Receipt Date: 20190412
  Transmission Date: 20190711
  Serious: No
  Sender: FDA-Public Use
  Company Number: US-JNJFOC-20190307274

PATIENT
  Age: 79 Year
  Sex: Male

DRUGS (4)
  1. BRILINTA [Concomitant]
     Active Substance: TICAGRELOR
     Indication: CARDIAC DISORDER
     Route: 065
     Dates: start: 20180716
  2. VERAPAMIL [Concomitant]
     Active Substance: VERAPAMIL HYDROCHLORIDE
     Indication: CARDIAC DISORDER
     Route: 065
     Dates: start: 1994
  3. WARFARIN [Concomitant]
     Active Substance: WARFARIN
     Indication: THROMBOSIS
     Route: 065
     Dates: start: 2005
  4. ZYTIGA [Suspect]
     Active Substance: ABIRATERONE ACETATE
     Indication: PROSTATE CANCER
     Route: 048
     Dates: end: 20190211

REACTIONS (4)
  - Arthralgia [Recovering/Resolving]
  - Oedema peripheral [Unknown]
  - Muscular weakness [Unknown]
  - Neuralgia [Unknown]

NARRATIVE: CASE EVENT DATE: 20190131
